FAERS Safety Report 16589851 (Version 3)
Quarter: 2019Q3

REPORT INFORMATION
  Report Type: Spontaneous
  Country: CN (occurrence: CN)
  Receive Date: 20190718
  Receipt Date: 20190725
  Transmission Date: 20191004
  Serious: Yes (Hospitalization)
  Sender: FDA-Public Use
  Company Number: CN-EISAI MEDICAL RESEARCH-EC-2019-059219

PATIENT
  Age: 24 Year
  Sex: Female

DRUGS (1)
  1. LENVIMA [Suspect]
     Active Substance: LENVATINIB
     Indication: HEPATIC CANCER
     Route: 048
     Dates: start: 20190521, end: 20190717

REACTIONS (4)
  - Epilepsy [Not Recovered/Not Resolved]
  - Lung infection [Unknown]
  - Heart rate increased [Unknown]
  - Hypertension [Not Recovered/Not Resolved]

NARRATIVE: CASE EVENT DATE: 201907
